FAERS Safety Report 6667663-1 (Version None)
Quarter: 2010Q2

REPORT INFORMATION
  Report Type: 
  Country: None (occurrence: None)
  Receive Date: 20100405
  Receipt Date: 20100323
  Transmission Date: 20101027
  Serious: Yes (Congenital Anomaly)
  Sender: FDA-Public Use
  Company Number: B0644076A

PATIENT
  Sex: Female

DRUGS (3)
  1. LAMICTAL CD [Suspect]
     Indication: EPILEPSY
     Dosage: 200MG PER DAY
  2. DEPAKIN [Suspect]
     Indication: EPILEPSY
     Dosage: 1000MG PER DAY
  3. TOPAMAX [Suspect]
     Indication: EPILEPSY
     Dosage: 25MG PER DAY

REACTIONS (17)
  - ATRIAL SEPTAL DEFECT [None]
  - CAESAREAN SECTION [None]
  - CARDIAC MURMUR [None]
  - CRANIOSYNOSTOSIS [None]
  - FINGER HYPOPLASIA [None]
  - HIGH ARCHED PALATE [None]
  - HYPOSPADIAS [None]
  - LIMB DEFORMITY [None]
  - LIMB HYPOPLASIA CONGENITAL [None]
  - LIMB MALFORMATION [None]
  - MATERNAL DRUGS AFFECTING FOETUS [None]
  - PATENT DUCTUS ARTERIOSUS [None]
  - RENAL HYPOPLASIA [None]
  - SKIN FISSURES [None]
  - SKULL MALFORMATION [None]
  - SUTURE INSERTION [None]
  - VENTRICULAR SEPTAL DEFECT [None]
